FAERS Safety Report 4544245-9 (Version None)
Quarter: 2004Q4

REPORT INFORMATION
  Report Type: 
  Country: None (occurrence: None)
  Receive Date: 20041230
  Receipt Date: 20041220
  Transmission Date: 20050328
  Serious: Yes (Death, Hospitalization)
  Sender: FDA-Public Use
  Company Number: 105700ISR

PATIENT
  Age: 65 Year
  Sex: Male

DRUGS (5)
  1. CISPLATIN [Suspect]
     Indication: LUNG NEOPLASM MALIGNANT
     Dosage: INTRAVENOUS (NOS)
     Route: 042
     Dates: end: 20030916
  2. ETOPOSIDE [Suspect]
     Indication: LUNG NEOPLASM MALIGNANT
     Dosage: INTRAVENOUS (NOS)
     Route: 042
     Dates: end: 20030916
  3. PREDNISOLONE SODIUM PHOSPHATE [Concomitant]
  4. ITRACONAZOLE [Concomitant]
  5. LENOGRASTIM [Concomitant]

REACTIONS (4)
  - AGRANULOCYTOSIS [None]
  - LUNG DISORDER [None]
  - PNEUMONIA [None]
  - SEPTIC SHOCK [None]
